FAERS Safety Report 6338235-3 (Version None)
Quarter: 2009Q3

REPORT INFORMATION
  Report Type: 
  Country: None (occurrence: None)
  Receive Date: 20090902
  Receipt Date: 20090820
  Transmission Date: 20100115
  Serious: Yes (Other)
  Sender: FDA-Public Use
  Company Number: PHHY2009BR35592

PATIENT
  Sex: Male

DRUGS (2)
  1. CODATEN [Suspect]
     Indication: BONE PAIN
     Dosage: 50 MG, Q12H
     Route: 048
     Dates: start: 20090813
  2. LANTUS [Concomitant]
     Indication: DIABETES MELLITUS
     Dosage: 40 U, UNK
     Route: 058

REACTIONS (3)
  - ABNORMAL BEHAVIOUR [None]
  - AGGRESSION [None]
  - MEMORY IMPAIRMENT [None]
